FAERS Safety Report 9620076 (Version 2)
Quarter: 2019Q3

REPORT INFORMATION
  Report Type: Spontaneous
  Country: CA (occurrence: CA)
  Receive Date: 20131014
  Receipt Date: 20190906
  Transmission Date: 20191005
  Serious: Yes (Other)
  Sender: FDA-Public Use
  Company Number: CA-PFIZER INC-2013288089

PATIENT
  Age: 6 Decade
  Sex: Female

DRUGS (15)
  1. VITAMIN C [Suspect]
     Active Substance: ASCORBIC ACID
     Dosage: UNK
     Route: 065
  2. ATORVASTATIN CALCIUM. [Suspect]
     Active Substance: ATORVASTATIN CALCIUM
     Dosage: 800 MG, UNK
     Route: 065
  3. VENLAFAXINE XR [Suspect]
     Active Substance: VENLAFAXINE HYDROCHLORIDE
     Dosage: 159 MG, UNK
     Route: 065
  4. VITAMIN B12 [Suspect]
     Active Substance: CYANOCOBALAMIN
     Dosage: UNK
  5. CYANOCOBALAMIN. [Suspect]
     Active Substance: CYANOCOBALAMIN
     Dosage: UNK
  6. LANTUS [Suspect]
     Active Substance: INSULIN GLARGINE
     Dosage: UNK
  7. VITAMIN D [Suspect]
     Active Substance: VITAMIN D NOS
     Dosage: UNK
     Route: 065
  8. FOSINOPRIL SODIUM. [Suspect]
     Active Substance: FOSINOPRIL SODIUM
     Dosage: 10 MG, UNK
     Route: 065
  9. NOVORAPID [Suspect]
     Active Substance: INSULIN ASPART
     Dosage: UNK
  10. VITAMIN B6 [Suspect]
     Active Substance: PYRIDOXINE HYDROCHLORIDE
     Dosage: UNK
     Route: 065
  11. IRON [Suspect]
     Active Substance: IRON
     Dosage: HIGH DOSE
     Route: 065
  12. VITAMIN F [Suspect]
     Active Substance: OMEGA-3 FATTY ACIDS
     Dosage: UNK
  13. OMEGA 3-6-9 [FISH OIL;TOCOPHEROL] [Suspect]
     Active Substance: FISH OIL\TOCOPHEROL
     Dosage: UNK
     Route: 065
  14. DOMPERIDONE MALEATE [Suspect]
     Active Substance: DOMPERIDONE MALEATE
     Dosage: 10 MG, UNK
     Route: 065
  15. LEVOTHYROXINE SODIUM. [Suspect]
     Active Substance: LEVOTHYROXINE SODIUM
     Dosage: 10 MG, UNK

REACTIONS (8)
  - Anxiety [Unknown]
  - Type 1 diabetes mellitus [Unknown]
  - Dry skin [Unknown]
  - Feeling abnormal [Unknown]
  - Amnesia [Unknown]
  - Pruritus [Unknown]
  - Mood swings [Unknown]
  - Anaemia [Unknown]
